FAERS Safety Report 9391076 (Version 1)
Quarter: 2013Q3

REPORT INFORMATION
  Report Type: Spontaneous
  Country: US (occurrence: US)
  Receive Date: 20130709
  Receipt Date: 20130709
  Transmission Date: 20140515
  Serious: Yes (Other)
  Sender: FDA-Public Use
  Company Number: US-PFIZER INC-2013201695

PATIENT
  Sex: Female

DRUGS (1)
  1. NEURONTIN [Suspect]
     Dosage: 3200 MG/DAY

REACTIONS (3)
  - Complex regional pain syndrome [Unknown]
  - Abasia [Unknown]
  - Drug ineffective [Unknown]
